FAERS Safety Report 6890869-3 (Version None)
Quarter: 2010Q3

REPORT INFORMATION
  Report Type: 
  Country: None (occurrence: None)
  Receive Date: 20100731
  Receipt Date: 20090401
  Transmission Date: 20110219
  Serious: No
  Sender: FDA-Public Use
  Company Number: US-PFIZER INC-2009192610

PATIENT
  Sex: Female
  Weight: 68.027 kg

DRUGS (4)
  1. LIPITOR [Suspect]
     Indication: BLOOD CHOLESTEROL ABNORMAL
     Dosage: 10 MG, 1X/DAY
  2. ARTHROTEC [Suspect]
     Indication: ARTHRITIS
     Dosage: [MISOPROSTOL 75 MG]/[DICLOFENAC SODIUM 0.2 MG] DAILY
  3. PREMARIN [Concomitant]
     Dosage: UNK
  4. GABAPENTIN [Concomitant]
     Indication: NEURALGIA
     Dosage: UNK

REACTIONS (3)
  - CARBOHYDRATE TOLERANCE DECREASED [None]
  - GASTROOESOPHAGEAL REFLUX DISEASE [None]
  - MYOFASCIAL PAIN SYNDROME [None]
